FAERS Safety Report 5004253-0 (Version None)
Quarter: 2006Q2

REPORT INFORMATION
  Report Type: 
  Country: None (occurrence: None)
  Receive Date: 20060517
  Receipt Date: 20041018
  Transmission Date: 20061013
  Serious: Yes (Hospitalization)
  Sender: FDA-Public Use
  Company Number: US-MERCK-0410USA02748

PATIENT
  Age: 66 Year
  Sex: Male
  Weight: 105 kg

DRUGS (7)
  1. VIOXX [Suspect]
     Indication: ARTHRALGIA
     Route: 048
     Dates: start: 20010604, end: 20030714
  2. PRAVACHOL [Concomitant]
     Indication: HYPERCHOLESTEROLAEMIA
     Route: 065
  3. COMBIVENT [Concomitant]
     Route: 065
  4. DILANTIN [Concomitant]
     Indication: MIGRAINE
     Route: 065
  5. DIAZEPAM [Concomitant]
     Route: 065
  6. ALLEGRA [Concomitant]
     Route: 065
  7. TYLENOL (CAPLET) [Concomitant]
     Indication: ARTHRALGIA
     Route: 065
     Dates: start: 20030101

REACTIONS (5)
  - ABDOMINAL PAIN UPPER [None]
  - APHTHOUS STOMATITIS [None]
  - KNEE ARTHROPLASTY [None]
  - MYOCARDIAL INFARCTION [None]
  - UPPER RESPIRATORY TRACT INFECTION [None]
